FAERS Safety Report 13042836 (Version 4)
Quarter: 2017Q1

REPORT INFORMATION
  Report Type: Report from Study
  Country: US (occurrence: US)
  Receive Date: 20161219
  Receipt Date: 20170330
  Transmission Date: 20170428
  Serious: Yes (Hospitalization)
  Sender: FDA-Public Use
  Company Number: US-ACTELION-A-NJ2016-145770

PATIENT
  Age: 60 Year
  Sex: Female

DRUGS (3)
  1. SILDENAFIL CITRATE. [Concomitant]
     Active Substance: SILDENAFIL CITRATE
  2. UPTRAVI [Suspect]
     Active Substance: SELEXIPAG
     Indication: PULMONARY HYPERTENSION
     Route: 048
  3. OPSUMIT [Suspect]
     Active Substance: MACITENTAN
     Indication: PULMONARY HYPERTENSION
     Dosage: 10 MG, QD
     Route: 048
     Dates: start: 20160926

REACTIONS (13)
  - Contusion [Unknown]
  - Atrial fibrillation [Recovered/Resolved]
  - Fluid retention [Unknown]
  - Pulmonary hypertension [Unknown]
  - Renal impairment [Recovering/Resolving]
  - Fluid overload [Unknown]
  - Infection [Unknown]
  - Arteriovenous fistula occlusion [Recovered/Resolved]
  - Diarrhoea [Recovering/Resolving]
  - Local swelling [Unknown]
  - Fall [Recovered/Resolved]
  - Cellulitis [Recovered/Resolved]
  - Clostridium difficile infection [Recovering/Resolving]

NARRATIVE: CASE EVENT DATE: 20161205
